FAERS Safety Report 24583502 (Version 1)
Quarter: 2024Q4

REPORT INFORMATION
  Report Type: Spontaneous
  Country: US (occurrence: US)
  Receive Date: 20241106
  Receipt Date: 20241106
  Transmission Date: 20250115
  Serious: No
  Sender: ALKEM
  Company Number: US-ALKEM LABORATORIES LIMITED-US-ALKEM-2024-20580

PATIENT
  Age: 69 Year
  Sex: Male

DRUGS (3)
  1. TICAGRELOR [Interacting]
     Active Substance: TICAGRELOR
     Indication: Thrombolysis
     Dosage: 180 MILLIGRAM
     Route: 065
  2. PHENYTOIN [Interacting]
     Active Substance: PHENYTOIN
     Indication: Product used for unknown indication
     Dosage: 300 MILLIGRAM, QD
     Route: 065
  3. TENECTEPLASE [Concomitant]
     Active Substance: TENECTEPLASE
     Indication: Thrombolysis
     Dosage: UNK
     Route: 065

REACTIONS (1)
  - Drug interaction [Unknown]
